FAERS Safety Report 13432551 (Version 2)
Quarter: 2017Q3

REPORT INFORMATION
  Report Type: Spontaneous
  Country: US (occurrence: US)
  Receive Date: 20170412
  Receipt Date: 20170920
  Transmission Date: 20171127
  Serious: No
  Sender: FDA-Public Use
  Company Number: US-ASTRAZENECA-2017SE38574

PATIENT
  Age: 75 Year
  Sex: Male

DRUGS (7)
  1. PROZAC [Interacting]
     Active Substance: FLUOXETINE HYDROCHLORIDE
     Dosage: NON AZ PRODUCT
     Route: 065
  2. PRILOSEC OTC [Interacting]
     Active Substance: OMEPRAZOLE MAGNESIUM
     Indication: DYSPEPSIA
     Dosage: STOPPED FOR 3 DAYS A FEW WEEKS AGO
     Route: 048
  3. PRILOSEC OTC [Interacting]
     Active Substance: OMEPRAZOLE MAGNESIUM
     Indication: DYSPEPSIA
     Dosage: 1 DF, DAILY, WENT BACK TO TAKING IT
     Route: 048
  4. PRILOSEC OTC [Interacting]
     Active Substance: OMEPRAZOLE MAGNESIUM
     Indication: GASTROOESOPHAGEAL REFLUX DISEASE
     Dosage: 1 DF, DAILY, WENT BACK TO TAKING IT
     Route: 048
  5. PRILOSEC OTC [Interacting]
     Active Substance: OMEPRAZOLE MAGNESIUM
     Indication: DYSPEPSIA
     Route: 048
     Dates: end: 20170909
  6. PRILOSEC OTC [Interacting]
     Active Substance: OMEPRAZOLE MAGNESIUM
     Indication: GASTROOESOPHAGEAL REFLUX DISEASE
     Dosage: STOPPED FOR 3 DAYS A FEW WEEKS AGO
     Route: 048
  7. PRILOSEC OTC [Suspect]
     Active Substance: OMEPRAZOLE MAGNESIUM
     Indication: GASTROOESOPHAGEAL REFLUX DISEASE
     Route: 048
     Dates: end: 20170909

REACTIONS (7)
  - Malaise [Recovered/Resolved]
  - Incorrect drug administration duration [Unknown]
  - Balance disorder [Recovered/Resolved]
  - Drug interaction [Recovered/Resolved]
  - Blood pressure decreased [Recovered/Resolved]
  - Dizziness [Recovered/Resolved]
  - Off label use [Unknown]
